FAERS Safety Report 9204090 (Version 1)
Quarter: 2013Q2

REPORT INFORMATION
  Report Type: Spontaneous
  Country: US (occurrence: US)
  Receive Date: 20130402
  Receipt Date: 20130402
  Transmission Date: 20140414
  Serious: No
  Sender: FDA-Public Use
  Company Number: US-PFIZER INC-2013102630

PATIENT
  Age: 64 Year
  Sex: Female
  Weight: 56.69 kg

DRUGS (9)
  1. LYRICA [Suspect]
     Indication: NEUROPATHY PERIPHERAL
     Dosage: 150 MG, 3X/DAY
     Dates: start: 20130109, end: 2013
  2. LYRICA [Suspect]
     Dosage: 200 MG, 2X/DAY
     Dates: start: 2013
  3. NAPROXEN [Concomitant]
     Indication: ARTHRITIS
     Dosage: 500 MG, 1X/DAY
  4. ATIVAN [Concomitant]
     Dosage: 1 MG, 3X/DAY
  5. ATENOLOL [Concomitant]
     Dosage: 25 MG, 1X/DAY
  6. LEXAPRO [Concomitant]
     Dosage: 5 MG, 1X/DAY
  7. REQUIP [Concomitant]
     Dosage: 0.5 MG, 1X/DAY
  8. SEROQUEL XR [Concomitant]
     Indication: SCHIZOAFFECTIVE DISORDER
     Dosage: 300 MG, 1X/DAY
  9. SEROQUEL XR [Concomitant]
     Indication: DEPRESSION

REACTIONS (6)
  - Disturbance in attention [Not Recovered/Not Resolved]
  - Anaemia [Unknown]
  - Serum ferritin decreased [Unknown]
  - Dizziness [Not Recovered/Not Resolved]
  - Somnolence [Not Recovered/Not Resolved]
  - Drug effect decreased [Unknown]
